FAERS Safety Report 8052671-9 (Version None)
Quarter: 2012Q1

REPORT INFORMATION
  Report Type: 
  Country: None (occurrence: None)
  Receive Date: 20120118
  Receipt Date: 20120118
  Transmission Date: 20120608
  Serious: Yes (Hospitalization)
  Sender: FDA-Public Use
  Company Number: None

PATIENT
  Age: 48 Year
  Sex: Female
  Weight: 88.45 kg

DRUGS (2)
  1. CHORIONIC GONADOTROPIN [Suspect]
     Indication: WEIGHT CONTROL
     Dosage: 16CC
     Route: 030
     Dates: start: 20111009, end: 20111026
  2. PHENTERMINE HYDROCHLORIDE [Concomitant]
     Indication: WEIGHT CONTROL
     Dosage: 37.5 MG TABLET
     Route: 048
     Dates: start: 20111009, end: 20111026

REACTIONS (8)
  - NAUSEA [None]
  - INSOMNIA [None]
  - BACK PAIN [None]
  - HEADACHE [None]
  - ABDOMINAL PAIN [None]
  - DYSGEUSIA [None]
  - GAIT DISTURBANCE [None]
  - IMPAIRED WORK ABILITY [None]
